FAERS Safety Report 10919222 (Version 6)
Quarter: 2015Q3

REPORT INFORMATION
  Report Type: Report from Study
  Country: AU (occurrence: AU)
  Receive Date: 20150316
  Receipt Date: 20150707
  Transmission Date: 20151125
  Serious: Yes (Hospitalization)
  Sender: FDA-Public Use
  Company Number: AU-009507513-1501AUS011808

PATIENT
  Age: 61 Year
  Sex: Male
  Weight: 98 kg

DRUGS (12)
  1. LORATADINE. [Concomitant]
     Active Substance: LORATADINE
     Indication: RASH
     Dosage: 10 MG, QD
     Route: 048
     Dates: start: 20141215
  2. ENDONE [Concomitant]
     Active Substance: OXYCODONE HYDROCHLORIDE
     Indication: ANALGESIC THERAPY
     Dosage: TOTAL DAILY DOSE: 5 MG, PRN
     Route: 048
     Dates: start: 201310
  3. BACTROBAN [Concomitant]
     Active Substance: MUPIROCIN\MUPIROCIN CALCIUM
     Indication: NASAL DISCOMFORT
     Dosage: TOTAL DAILY DOSE 3 G, BID
     Route: 061
     Dates: start: 20140327
  4. NOVASONE [Concomitant]
     Active Substance: MOMETASONE FUROATE
     Indication: RASH
     Dosage: TOTAL DAILY DOSE: 0.1%, PRN
     Route: 061
     Dates: start: 20150102, end: 201502
  5. PEMBROLIZUMAB. [Suspect]
     Active Substance: PEMBROLIZUMAB
     Dosage: 10 MG/KG, Q3W
     Route: 042
     Dates: start: 20150106, end: 20150106
  6. SODIUM FLUORIDE. [Concomitant]
     Active Substance: SODIUM FLUORIDE
     Indication: GINGIVAL PAIN
     Dosage: TOTAL DAILY DOSE; 1.1 %, PRN
     Route: 048
     Dates: start: 20140712
  7. PREDNISONE. [Concomitant]
     Active Substance: PREDNISONE
     Indication: ARTHRALGIA
     Dosage: 5 MG, QD
     Route: 048
     Dates: start: 20141213, end: 20150123
  8. QV INTENSIVE BODY MOISTURISER [Concomitant]
     Indication: RASH
     Dosage: TOTAL DAILY DOSE 1 APPLICATION, BID
     Route: 061
     Dates: start: 20141216
  9. PEMBROLIZUMAB. [Suspect]
     Active Substance: PEMBROLIZUMAB
     Indication: MALIGNANT MELANOMA
     Dosage: 10 MG/KG, Q3W
     Route: 042
     Dates: start: 20131203, end: 20141216
  10. MICARDIS [Concomitant]
     Active Substance: TELMISARTAN
     Indication: HYPERTENSION
     Dosage: 40 MG, QD
     Route: 048
     Dates: start: 201307, end: 20150119
  11. BIOTENE (PASTE) [Concomitant]
     Active Substance: SODIUM MONOFLUOROPHOSPHATE
     Indication: DRY MOUTH
     Dosage: 1 APPLICATION, QD
     Route: 048
     Dates: start: 20140303
  12. NAXOPREN [Concomitant]
     Indication: ARTHRALGIA
     Dosage: 1000 MG, QD
     Route: 048
     Dates: start: 20141126, end: 20150123

REACTIONS (2)
  - Confusional state [Recovered/Resolved]
  - Dehydration [Recovered/Resolved]

NARRATIVE: CASE EVENT DATE: 20150119
